FAERS Safety Report 8378080-0 (Version None)
Quarter: 2012Q2

REPORT INFORMATION
  Report Type: 
  Country: None (occurrence: None)
  Receive Date: 20120522
  Receipt Date: 20120511
  Transmission Date: 20120825
  Serious: Yes (Life-Threatening)
  Sender: FDA-Public Use
  Company Number: CN-BAXTER-2012BAX005411

PATIENT

DRUGS (2)
  1. SODIUM LACTATE RINGER'S INJECTION 500ML [Suspect]
     Indication: INTRAVENOUS CATHETER MANAGEMENT
     Route: 041
  2. SODIUM CHLORIDE [Concomitant]
     Indication: INTRAVENOUS CATHETER MANAGEMENT
     Route: 041

REACTIONS (3)
  - PHYSICAL EXAMINATION ABNORMAL [None]
  - FLUSHING [None]
  - DYSPNOEA [None]
